FAERS Safety Report 8032722-8 (Version None)
Quarter: 2012Q1

REPORT INFORMATION
  Report Type: 
  Country: None (occurrence: None)
  Receive Date: 20120110
  Receipt Date: 20120106
  Transmission Date: 20120608
  Serious: Yes (Other)
  Sender: FDA-Public Use
  Company Number: US-AMGEN-USASP2011066501

PATIENT
  Age: 79 Year
  Sex: Female
  Weight: 63.946 kg

DRUGS (1)
  1. PROLIA [Suspect]
     Indication: OSTEOPOROSIS POSTMENOPAUSAL
     Dosage: 20 MUG, Q6MO
     Route: 058
     Dates: start: 20110617

REACTIONS (1)
  - BLADDER CANCER RECURRENT [None]
